FAERS Safety Report 10917002 (Version 1)
Quarter: 2015Q1

REPORT INFORMATION
  Report Type: Spontaneous
  Country: NO (occurrence: None)
  Receive Date: 20150311
  Receipt Date: 20150311
  Transmission Date: 20150721
  Serious: Yes (Hospitalization)
  Sender: FDA-Public Use
  Company Number: FK201501063

PATIENT
  Age: 49 Year
  Sex: Female

DRUGS (3)
  1. REMIFENTANIL [Concomitant]
     Active Substance: REMIFENTANIL
  2. PROPOFOL FRESENIUS (NOT SPECIFIED) (PROPOFOL) (PROPOFOL) [Suspect]
     Active Substance: PROPOFOL
     Indication: GENERAL ANAESTHESIA
     Dosage: 358 MG, 1 IN 1 TOTAL, INTRAVENOUS (NOT OTHERWISE SPECIFIED)??
     Route: 042
     Dates: start: 20150211, end: 20150211
  3. FENTANYL. [Concomitant]
     Active Substance: FENTANYL

REACTIONS (1)
  - Dyskinesia [None]

NARRATIVE: CASE EVENT DATE: 20150211
